FAERS Safety Report 13298188 (Version 1)
Quarter: 2017Q1

REPORT INFORMATION
  Report Type: Report from Study
  Country: CH (occurrence: CH)
  Receive Date: 20170306
  Receipt Date: 20170306
  Transmission Date: 20170428
  Serious: Yes (Death)
  Sender: FDA-Public Use
  Company Number: CH-PFIZER INC-2017090075

PATIENT
  Age: 12 Year
  Sex: Male

DRUGS (4)
  1. ANTITHYMOCYTE IMMUNOGLOBULIN [Concomitant]
     Active Substance: THYMOCYTE IMMUNE GLOBULIN NOS
     Indication: TRANSPLANT REJECTION
     Dosage: UNK
  2. BORTEZOMIB [Concomitant]
     Active Substance: BORTEZOMIB
     Indication: TRANSPLANT REJECTION
     Dosage: UNK
  3. METHYLPREDNISOLONE. [Suspect]
     Active Substance: METHYLPREDNISOLONE
     Indication: TRANSPLANT REJECTION
     Dosage: UNK
  4. ECULIZUMAB [Concomitant]
     Active Substance: ECULIZUMAB
     Indication: TRANSPLANT REJECTION
     Dosage: UNK

REACTIONS (2)
  - Transplant rejection [Fatal]
  - Sepsis [Fatal]
